FAERS Safety Report 20850720 (Version 1)
Quarter: 2022Q2

REPORT INFORMATION
  Report Type: Spontaneous
  Country: US (occurrence: US)
  Receive Date: 20220519
  Receipt Date: 20220519
  Transmission Date: 20220721
  Serious: Yes (Hospitalization, Other)
  Sender: FDA-Public Use
  Company Number: US-GLAXOSMITHKLINE-US2022079491

PATIENT

DRUGS (1)
  1. FLOVENT HFA [Suspect]
     Active Substance: FLUTICASONE PROPIONATE
     Indication: Asthma
     Dosage: UNK

REACTIONS (7)
  - Loss of consciousness [Unknown]
  - COVID-19 [Unknown]
  - Sarcoidosis [Not Recovered/Not Resolved]
  - Cardiac pacemaker insertion [Not Recovered/Not Resolved]
  - Blood potassium decreased [Unknown]
  - Cardiac disorder [Unknown]
  - Coronavirus test positive [Unknown]

NARRATIVE: CASE EVENT DATE: 20210101
